FAERS Safety Report 9862105 (Version 2)
Quarter: 2014Q1

REPORT INFORMATION
  Report Type: Report from Study
  Country: NL (occurrence: NL)
  Receive Date: 20140203
  Receipt Date: 20140211
  Transmission Date: 20141002
  Serious: Yes (Hospitalization)
  Sender: FDA-Public Use
  Company Number: NL-ROCHE-1337976

PATIENT
  Age: 55 Year
  Sex: Male

DRUGS (13)
  1. RITUXIMAB [Suspect]
     Indication: DIFFUSE LARGE B-CELL LYMPHOMA
     Dosage: DATE OF LAST DOSE PRIOR TO SAE- 27/NOV/2013
     Route: 042
     Dates: start: 20130822
  2. CYCLOPHOSPHAMIDE [Suspect]
     Indication: DIFFUSE LARGE B-CELL LYMPHOMA
     Route: 065
  3. DOXORUBICIN [Suspect]
     Indication: DIFFUSE LARGE B-CELL LYMPHOMA
     Route: 065
  4. VINCRISTINE [Suspect]
     Indication: DIFFUSE LARGE B-CELL LYMPHOMA
     Route: 065
  5. PREDNISONE [Suspect]
     Indication: DIFFUSE LARGE B-CELL LYMPHOMA
     Route: 065
  6. PAROXETINE [Concomitant]
     Indication: PROPHYLAXIS
     Dosage: 20 MG PER DAY
     Route: 065
     Dates: start: 20091021
  7. FOLIUMZUUR [Concomitant]
     Dosage: 1MG PER DAY
     Route: 065
     Dates: start: 20140114
  8. VALACICLOVIR [Concomitant]
     Indication: PROPHYLAXIS
     Route: 048
  9. CO-TRIMOXAZOLE [Concomitant]
     Indication: PROPHYLAXIS
     Route: 048
     Dates: start: 20130822
  10. ALLOPURINOL [Concomitant]
     Indication: PROPHYLAXIS
     Route: 048
     Dates: start: 20130822, end: 20130828
  11. RASBURICASE [Concomitant]
     Indication: PROPHYLAXIS
     Route: 042
     Dates: start: 20130815, end: 20130816
  12. PEGFILGRASTIM [Concomitant]
     Indication: PROPHYLAXIS
     Route: 058
     Dates: start: 20130825
  13. PREDNISONE [Concomitant]
     Route: 048
     Dates: start: 20130815, end: 20130821

REACTIONS (1)
  - Syncope [Not Recovered/Not Resolved]
